FAERS Safety Report 23404173 (Version 1)
Quarter: 2024Q1

REPORT INFORMATION
  Report Type: Spontaneous
  Country: GB (occurrence: None)
  Receive Date: 20240116
  Receipt Date: 20240116
  Transmission Date: 20240409
  Serious: Yes (Hospitalization)
  Sender: FDA-Public Use
  Company Number: GB-ROCHE-3490375

PATIENT
  Age: 77 Year
  Sex: Female

DRUGS (1)
  1. HERCEPTIN [Suspect]
     Active Substance: TRASTUZUMAB
     Indication: Breast cancer
     Dosage: 3 WEEKLY
     Route: 058

REACTIONS (4)
  - Cerebral haemorrhage [Not Recovered/Not Resolved]
  - Mobility decreased [Unknown]
  - Fatigue [Unknown]
  - Memory impairment [Unknown]
